FAERS Safety Report 4988678-5 (Version None)
Quarter: 2006Q2

REPORT INFORMATION
  Report Type: 
  Country: None (occurrence: None)
  Receive Date: 20060502
  Receipt Date: 20050803
  Transmission Date: 20061013
  Serious: Yes (Hospitalization, Other)
  Sender: FDA-Public Use
  Company Number: US-MERCK-0508USA01153

PATIENT
  Age: 55 Year
  Sex: Female
  Weight: 63 kg

DRUGS (1)
  1. VIOXX [Suspect]
     Route: 048

REACTIONS (12)
  - ANGINA PECTORIS [None]
  - AORTIC VALVE DISEASE [None]
  - ARTHRALGIA [None]
  - CARDIAC FAILURE CONGESTIVE [None]
  - CEREBROVASCULAR ACCIDENT [None]
  - CHEST PAIN [None]
  - CORONARY ARTERY DISEASE [None]
  - MYOCARDIAL INFARCTION [None]
  - NERVE INJURY [None]
  - PAIN IN EXTREMITY [None]
  - PERIPHERAL SENSORY NEUROPATHY [None]
  - TRANSIENT ISCHAEMIC ATTACK [None]
